FAERS Safety Report 14568040 (Version 1)
Quarter: 2018Q1

REPORT INFORMATION
  Report Type: Report from Study
  Country: ES (occurrence: ES)
  Receive Date: 20180223
  Receipt Date: 20180223
  Transmission Date: 20180509
  Serious: Yes (Hospitalization)
  Sender: FDA-Public Use
  Company Number: ES-TEVA-2018-ES-859431

PATIENT
  Age: 79 Year
  Sex: Female

DRUGS (5)
  1. LORMETAZEPAM (88A) [Concomitant]
     Indication: ANXIETY
     Route: 048
     Dates: start: 20160714
  2. SERTRALINA (2537A) [Suspect]
     Active Substance: SERTRALINE HYDROCHLORIDE
     Indication: DEPRESSION
     Route: 048
     Dates: start: 201406, end: 20160716
  3. DICLOFENACO (745A) [Concomitant]
     Active Substance: DICLOFENAC
     Indication: NECK PAIN
     Route: 048
     Dates: start: 20160713
  4. HIDROSALURETIL 50 MG COMPRIMIDOS EFG , 20 COMPRIMIDOS [Suspect]
     Active Substance: HYDROCHLOROTHIAZIDE
     Indication: HYPERTENSION
     Route: 048
     Dates: start: 201202, end: 20160716
  5. EUTIROX 100 MICROGRAMOS COMPRIMIDOS , 100 COMPRIMIDOS [Concomitant]
     Indication: HYPOTHYROIDISM
     Route: 048
     Dates: start: 200506

REACTIONS (3)
  - Hypokalaemia [Recovered/Resolved]
  - Disorientation [Recovered/Resolved]
  - Hyponatraemia [Recovered/Resolved]

NARRATIVE: CASE EVENT DATE: 20160716
